FAERS Safety Report 6823973-6 (Version None)
Quarter: 2010Q3

REPORT INFORMATION
  Report Type: 
  Country: None (occurrence: None)
  Receive Date: 20100708
  Receipt Date: 20060923
  Transmission Date: 20110219
  Serious: No
  Sender: FDA-Public Use
  Company Number: US-PFIZER INC-2006116215

PATIENT
  Sex: Female
  Weight: 53.98 kg

DRUGS (10)
  1. CHANTIX [Suspect]
     Indication: SMOKING CESSATION THERAPY
     Route: 048
     Dates: start: 20060920
  2. QUINAPRIL [Concomitant]
     Route: 048
  3. PLAVIX [Concomitant]
     Route: 048
  4. PROTONIX [Concomitant]
     Route: 048
  5. COMBIVENT [Concomitant]
     Route: 055
  6. DUONEB [Concomitant]
  7. LASIX [Concomitant]
     Route: 048
  8. POTASSIUM CHLORIDE [Concomitant]
     Route: 048
  9. NITROGLYCERIN [Concomitant]
  10. BENADRYL [Concomitant]
     Route: 048

REACTIONS (5)
  - CHEST DISCOMFORT [None]
  - DYSPNOEA [None]
  - HEADACHE [None]
  - IRRITABILITY [None]
  - NAUSEA [None]
